FAERS Safety Report 8827731 (Version 1)
Quarter: 2012Q4

REPORT INFORMATION
  Report Type: 
  Country: FR (occurrence: FR)
  Receive Date: 20121005
  Receipt Date: 20121005
  Transmission Date: 20130627
  Serious: Yes (Hospitalization)
  Sender: FDA-Public Use
  Company Number: FR-ASTRAZENECA-2012SE74806

PATIENT
  Age: 82 Year
  Sex: Male

DRUGS (6)
  1. CASODEX [Suspect]
     Indication: PROSTATE CANCER
     Route: 048
  2. CETIRIZINE [Suspect]
     Indication: RASH
     Route: 065
  3. MIDODRINE HYDROCHLORIDE [Suspect]
     Route: 048
  4. OXYCODONE HYDROCHLORIDE [Suspect]
     Indication: BONE PAIN
     Route: 065
  5. ZOMETA [Suspect]
     Indication: METASTASES TO BONE
     Route: 042
     Dates: start: 201208
  6. IMOVANE [Suspect]
     Route: 065

REACTIONS (1)
  - Parotitis [Recovered/Resolved]
